FAERS Safety Report 9258720 (Version 1)
Quarter: 2013Q2

REPORT INFORMATION
  Report Type: Spontaneous
  Country: US (occurrence: None)
  Receive Date: 20130425
  Receipt Date: 20130425
  Transmission Date: 20140414
  Serious: Yes (Other)
  Sender: FDA-Public Use
  Company Number: None

PATIENT
  Age: 51 Year
  Sex: Female
  Weight: 79.83 kg

DRUGS (2)
  1. FLUTICASONE [Suspect]
     Indication: RHINITIS
     Dosage: 2 SPRAYS, DAILY, NASAL
     Route: 045
     Dates: start: 20130201, end: 20130220
  2. FLUTICASONE [Suspect]
     Indication: ASTHMA
     Dosage: 2 SPRAYS, DAILY, NASAL
     Route: 045
     Dates: start: 20130201, end: 20130220

REACTIONS (2)
  - Epistaxis [None]
  - Nasal polyps [None]
